FAERS Safety Report 10704643 (Version 1)
Quarter: 2015Q1

REPORT INFORMATION
  Report Type: Spontaneous
  Country: GB (occurrence: GB)
  Receive Date: 20150112
  Receipt Date: 20150112
  Transmission Date: 20150721
  Serious: Yes (Other)
  Sender: FDA-Public Use
  Company Number: GB-TEVA-532854ISR

PATIENT
  Age: 75 Year
  Sex: Female

DRUGS (9)
  1. FERROUS SULFATE [Concomitant]
     Active Substance: FERROUS SULFATE\FERROUS SULFATE, DRIED
     Route: 048
  2. OMEPRAZOLE. [Concomitant]
     Active Substance: OMEPRAZOLE
     Route: 048
  3. VENLAFAXINE [Concomitant]
     Active Substance: VENLAFAXINE HYDROCHLORIDE
     Indication: DEPRESSION
  4. DILTIAZEM [Concomitant]
     Active Substance: DILTIAZEM
     Route: 048
  5. PREGABALIN. [Concomitant]
     Active Substance: PREGABALIN
  6. CANDESARTAN [Concomitant]
     Active Substance: CANDESARTAN
     Route: 048
  7. MIRTAZAPINE. [Suspect]
     Active Substance: MIRTAZAPINE
     Dosage: PRESCRIBED FOR APPROXIMATELY 3 WEEKS.
     Route: 048
  8. DIAZEPAM. [Concomitant]
     Active Substance: DIAZEPAM
  9. ASPIRIN. [Concomitant]
     Active Substance: ASPIRIN
     Route: 048

REACTIONS (3)
  - Suicidal ideation [Recovered/Resolved]
  - Condition aggravated [Recovered/Resolved]
  - Abnormal dreams [Recovered/Resolved]
